FAERS Safety Report 16100002 (Version 1)
Quarter: 2019Q1

REPORT INFORMATION
  Report Type: Spontaneous
  Country: SK (occurrence: SK)
  Receive Date: 20190321
  Receipt Date: 20190321
  Transmission Date: 20190418
  Serious: Yes (Hospitalization)
  Sender: FDA-Public Use
  Company Number: SK-MYLANLABS-2019M1025153

PATIENT
  Age: 29 Year
  Sex: Male
  Weight: 89 kg

DRUGS (4)
  1. IBALGIN [Suspect]
     Active Substance: IBUPROFEN
     Indication: PAIN
     Dosage: 400 MILLIGRAM
     Route: 048
  2. MILGAMMA /01350701/ [Suspect]
     Active Substance: BENFOTIAMINE\PYRIDOXINE
     Indication: FACIAL NERVE DISORDER
     Dosage: UNK
     Route: 048
  3. HERPESIN                           /00587301/ [Suspect]
     Active Substance: ACYCLOVIR
     Indication: FACIAL NERVE DISORDER
     Dosage: 2000 MILLIGRAM, QD
     Route: 048
     Dates: start: 20180820, end: 20180827
  4. OMEPRAZOLE. [Suspect]
     Active Substance: OMEPRAZOLE
     Indication: FACIAL NERVE DISORDER
     Dosage: 20 MILLIGRAM, QD (1-0-0)
     Route: 048
     Dates: start: 20180820, end: 20180827

REACTIONS (2)
  - Rash maculo-papular [Recovered/Resolved]
  - Toxic skin eruption [Recovered/Resolved]

NARRATIVE: CASE EVENT DATE: 20180823
